FAERS Safety Report 21987283 (Version 2)
Quarter: 2023Q1

REPORT INFORMATION
  Report Type: Spontaneous
  Country: US (occurrence: US)
  Receive Date: 20230213
  Receipt Date: 20230313
  Transmission Date: 20230418
  Serious: No
  Sender: FDA-Public Use
  Company Number: US-BAUSCHBL-2023BNL001000

PATIENT
  Age: 69 Year
  Sex: Female
  Weight: 68.100 kg

DRUGS (1)
  1. LATANOPROST [Suspect]
     Active Substance: LATANOPROST
     Indication: Glaucoma
     Route: 047

REACTIONS (5)
  - Skin laceration [Unknown]
  - Product package associated injury [Unknown]
  - Product closure removal difficult [Unknown]
  - Wrong technique in product usage process [Unknown]
  - Product quality issue [Unknown]
